FAERS Safety Report 19089223 (Version 1)
Quarter: 2021Q2

REPORT INFORMATION
  Report Type: Spontaneous
  Country: FR (occurrence: FR)
  Receive Date: 20210403
  Receipt Date: 20210403
  Transmission Date: 20210717
  Serious: Yes (Other)
  Sender: FDA-Public Use
  Company Number: FR-AUROBINDO-AUR-APL-2021-013806

PATIENT
  Age: 57 Year
  Sex: Male

DRUGS (7)
  1. LOVENOX [Concomitant]
     Active Substance: ENOXAPARIN SODIUM
     Indication: THROMBOSIS PROPHYLAXIS
     Dosage: 1 DOSAGE FORM, ONCE A DAY
     Route: 058
     Dates: start: 20201208
  2. PARACETAMOL [Suspect]
     Active Substance: ACETAMINOPHEN
     Indication: PAIN
     Dosage: 1 GRAM
     Route: 048
     Dates: start: 20201208, end: 20201215
  3. CEFOTAXIME [Suspect]
     Active Substance: CEFOTAXIME SODIUM
     Indication: INFECTION
     Dosage: 2 GRAM, 3 TIMES A DAY
     Route: 042
     Dates: start: 20201209, end: 20201214
  4. ESOMEPRAZOLE. [Concomitant]
     Active Substance: ESOMEPRAZOLE MAGNESIUM
     Indication: PROPHYLAXIS
     Dosage: 40 MILLIGRAM, ONCE A DAY
     Route: 042
     Dates: start: 20201208, end: 20201217
  5. METRONIDAZOLE. [Suspect]
     Active Substance: METRONIDAZOLE
     Indication: INFECTION
     Dosage: 500 MILLIGRAM
     Route: 042
     Dates: start: 20201209, end: 20201214
  6. AUGMENTIN [Suspect]
     Active Substance: AMOXICILLIN\CLAVULANATE POTASSIUM
     Indication: INFECTION
     Dosage: 3 DOSAGE FORM, ONCE A DAY
     Route: 048
     Dates: start: 20201214, end: 20201215
  7. GENTAMICINE [Suspect]
     Active Substance: GENTAMICIN
     Indication: INFECTION
     Dosage: 160 MILLIGRAM, ONCE A DAY
     Route: 042
     Dates: start: 20201209, end: 20201210

REACTIONS (1)
  - Mixed liver injury [Recovered/Resolved]

NARRATIVE: CASE EVENT DATE: 20201215
